FAERS Safety Report 11580439 (Version 1)
Quarter: 2015Q3

REPORT INFORMATION
  Report Type: Spontaneous
  Country: US (occurrence: US)
  Receive Date: 20150916
  Receipt Date: 20150916
  Transmission Date: 20151125
  Serious: No
  Sender: FDA-Public Use
  Company Number: US-ELI_LILLY_AND_COMPANY-US200804002283

PATIENT
  Sex: Female

DRUGS (2)
  1. FORTEO [Suspect]
     Active Substance: TERIPARATIDE
     Dates: start: 200708, end: 20080301
  2. FORTEO [Suspect]
     Active Substance: TERIPARATIDE
     Dates: start: 20080401

REACTIONS (9)
  - Road traffic accident [Recovered/Resolved]
  - Faecal incontinence [Not Recovered/Not Resolved]
  - Cataract [Recovered/Resolved]
  - Gastritis [Recovered/Resolved]
  - Rib fracture [Recovered/Resolved]
  - Cataract [Recovered/Resolved]
  - Abdominal pain [Recovered/Resolved]
  - Diarrhoea [Not Recovered/Not Resolved]
  - Weight decreased [Not Recovered/Not Resolved]

NARRATIVE: CASE EVENT DATE: 200708
